FAERS Safety Report 7438715-3 (Version None)
Quarter: 2011Q2

REPORT INFORMATION
  Report Type: 
  Country: None (occurrence: None)
  Receive Date: 20110426
  Receipt Date: 20110425
  Transmission Date: 20111010
  Serious: Yes (Other)
  Sender: FDA-Public Use
  Company Number: US-PFIZER INC-2011089031

PATIENT
  Age: 38 Year
  Sex: Female
  Weight: 90.249 kg

DRUGS (2)
  1. IBUPROFEN (ADVIL) [Suspect]
     Indication: MUSCULOSKELETAL DISCOMFORT
     Dosage: 200 MG, 1X/DAY
     Route: 048
     Dates: start: 20110425
  2. IBUPROFEN (ADVIL) [Suspect]
     Indication: BACK PAIN

REACTIONS (5)
  - SWELLING FACE [None]
  - OEDEMA PERIPHERAL [None]
  - RASH [None]
  - DYSPNOEA [None]
  - ERYTHEMA [None]
